FAERS Safety Report 7929788-X (Version None)
Quarter: 2011Q4

REPORT INFORMATION
  Report Type: 
  Country: None (occurrence: None)
  Receive Date: 20111121
  Receipt Date: 20111116
  Transmission Date: 20120403
  Serious: Yes (Death, Hospitalization, Other)
  Sender: FDA-Public Use
  Company Number: PHEH2006US12307

PATIENT
  Sex: Female
  Weight: 68.934 kg

DRUGS (23)
  1. ACETAMINOPHEN [Concomitant]
  2. FLONASE [Concomitant]
  3. GUAIFED [Concomitant]
     Route: 048
  4. SIMVASTATIN [Concomitant]
  5. NOVOLOG [Concomitant]
     Route: 058
  6. THEO-DUR [Concomitant]
     Dosage: 300 MG, BID
     Route: 048
  7. ZAROXOLYN [Concomitant]
     Dosage: 5 MG, BID
     Route: 048
  8. DARVOCET-N 50 [Concomitant]
  9. FOSAMAX [Suspect]
  10. REGLAN [Concomitant]
     Dosage: 10 MG, TID
     Route: 048
  11. PROMETHAZINE [Concomitant]
  12. ZOMETA [Suspect]
     Indication: BONE LOSS
  13. MEPERIDINE HCL [Concomitant]
  14. LEVAQUIN [Concomitant]
  15. INDOMETHACIN [Concomitant]
  16. PERDIEM [Concomitant]
     Dosage: 2 DF, QHS
     Route: 048
  17. ACETAMINOPHEN [Concomitant]
  18. ASPIRIN [Concomitant]
     Dosage: 325 MG, BID
  19. COLACE [Concomitant]
  20. PREVACID [Concomitant]
     Dosage: 30 MG, BID
     Route: 048
  21. OXYCODONE HCL [Concomitant]
  22. KLOR-CON [Concomitant]
     Dosage: 20 MEQ, BID
     Route: 048
  23. ARTHROTEC [Concomitant]

REACTIONS (81)
  - EMOTIONAL DISTRESS [None]
  - DECREASED INTEREST [None]
  - DYSPNOEA [None]
  - NAUSEA [None]
  - MALAISE [None]
  - PAIN [None]
  - PAIN IN JAW [None]
  - ILEUS [None]
  - GASTROENTERITIS [None]
  - HYPERTENSION [None]
  - SEPSIS [None]
  - HYPERCALCAEMIA [None]
  - DEPRESSION [None]
  - INGROWING NAIL [None]
  - PNEUMONIA [None]
  - PAPULE [None]
  - HEADACHE [None]
  - PSORIASIS [None]
  - CATARACT [None]
  - ULCER [None]
  - CONFUSIONAL STATE [None]
  - ASTHMA [None]
  - DECUBITUS ULCER [None]
  - OSTEOPENIA [None]
  - STOMATITIS [None]
  - INFECTION [None]
  - FAILURE TO THRIVE [None]
  - FATIGUE [None]
  - BUNDLE BRANCH BLOCK LEFT [None]
  - SKIN DISORDER [None]
  - NEUROPATHY PERIPHERAL [None]
  - RASH [None]
  - CHRONIC OBSTRUCTIVE PULMONARY DISEASE [None]
  - IMMOBILE [None]
  - OPEN WOUND [None]
  - BONE NEOPLASM MALIGNANT [None]
  - ARTHRALGIA [None]
  - SKIN HYPERPIGMENTATION [None]
  - OSTEONECROSIS OF JAW [None]
  - ABDOMINAL PAIN [None]
  - OEDEMA PERIPHERAL [None]
  - METABOLIC ENCEPHALOPATHY [None]
  - CELLULITIS [None]
  - GAIT DISTURBANCE [None]
  - FAECALOMA [None]
  - HYPONATRAEMIA [None]
  - HYPERMAGNESAEMIA [None]
  - UROSEPSIS [None]
  - AMNESIA [None]
  - ASTHENIA [None]
  - CARDIAC FAILURE CONGESTIVE [None]
  - SPINAL OSTEOARTHRITIS [None]
  - DEFORMITY [None]
  - CYSTITIS [None]
  - ATRIAL FIBRILLATION [None]
  - CONSTIPATION [None]
  - EMPHYSEMA [None]
  - UMBILICAL HERNIA, OBSTRUCTIVE [None]
  - LEFT VENTRICULAR HYPERTROPHY [None]
  - DELIRIUM [None]
  - RESTLESSNESS [None]
  - IMMUNOSUPPRESSION [None]
  - JOINT SWELLING [None]
  - INJURY [None]
  - VISION BLURRED [None]
  - DRUG ERUPTION [None]
  - ATRIAL FLUTTER [None]
  - HYPERLIPIDAEMIA [None]
  - ANXIETY [None]
  - AZOTAEMIA [None]
  - LEUKOCYTOSIS [None]
  - ANAEMIA [None]
  - URINARY TRACT INFECTION [None]
  - RENAL FAILURE [None]
  - VOMITING [None]
  - MYALGIA [None]
  - SINUS BRADYCARDIA [None]
  - TYPE 1 DIABETES MELLITUS [None]
  - HYPOKALAEMIA [None]
  - PARONYCHIA [None]
  - ONYCHOLYSIS [None]
